FAERS Safety Report 12719043 (Version 1)
Quarter: 2016Q3

REPORT INFORMATION
  Report Type: Spontaneous
  Country: FR (occurrence: FR)
  Receive Date: 20160906
  Receipt Date: 20160906
  Transmission Date: 20161109
  Serious: Yes (Hospitalization)
  Sender: FDA-Public Use
  Company Number: FR-ROCHE-1826360

PATIENT
  Age: 49 Year
  Sex: Female

DRUGS (15)
  1. MABTHERA [Suspect]
     Active Substance: RITUXIMAB
     Indication: BURKITT^S LYMPHOMA
     Route: 042
     Dates: start: 20160819, end: 20160819
  2. IMOVANE [Concomitant]
     Active Substance: ZOPICLONE
  3. OXYCONTIN [Concomitant]
     Active Substance: OXYCODONE HYDROCHLORIDE
  4. INNOHEP [Concomitant]
     Active Substance: TINZAPARIN SODIUM
  5. THYROZOL [Concomitant]
     Active Substance: METHIMAZOLE
  6. LUTENYL [Concomitant]
     Active Substance: NOMEGESTROL ACETATE
  7. LYRICA [Concomitant]
     Active Substance: PREGABALIN
  8. DUPHALAC (AUSTRALIA) [Concomitant]
  9. EMEND [Suspect]
     Active Substance: APREPITANT
     Indication: PROPHYLAXIS OF NAUSEA AND VOMITING
     Route: 048
     Dates: start: 20160820, end: 20160821
  10. MESNA. [Suspect]
     Active Substance: MESNA
     Indication: PRODUCT USED FOR UNKNOWN INDICATION
     Route: 042
     Dates: start: 20160820, end: 20160820
  11. NEORECORMON [Concomitant]
     Active Substance: ERYTHROPOIETIN
  12. IFOSFAMIDE EG [Suspect]
     Active Substance: IFOSFAMIDE
     Indication: BURKITT^S LYMPHOMA
     Route: 042
     Dates: start: 20160820, end: 20160820
  13. CARBOPLATINE [Suspect]
     Active Substance: CARBOPLATIN
     Indication: BURKITT^S LYMPHOMA
     Route: 042
     Dates: start: 20160820, end: 20160820
  14. ETOPOPHOS [Suspect]
     Active Substance: ETOPOSIDE PHOSPHATE
     Indication: BURKITT^S LYMPHOMA
     Route: 042
     Dates: start: 20160819, end: 20160821
  15. ZELITREX [Concomitant]
     Active Substance: VALACYCLOVIR HYDROCHLORIDE

REACTIONS (2)
  - Headache [Recovered/Resolved]
  - Somnolence [Recovered/Resolved]

NARRATIVE: CASE EVENT DATE: 20160821
